FAERS Safety Report 8349224-1 (Version None)
Quarter: 2012Q2

REPORT INFORMATION
  Report Type: 
  Country: None (occurrence: None)
  Receive Date: 20120510
  Receipt Date: 20120507
  Transmission Date: 20120825
  Serious: Yes (Death)
  Sender: FDA-Public Use
  Company Number: PHHY2012CA037445

PATIENT
  Sex: Female

DRUGS (5)
  1. SEROQUEL XR [Concomitant]
     Dosage: 50 REGULAR QHS
  2. TEGRETOL [Concomitant]
     Dosage: 30 UKN, QHS
  3. VALPROATE SODIUM [Concomitant]
     Dosage: 800 UKN, BID
  4. CLOZARIL [Suspect]
     Indication: SCHIZOAFFECTIVE DISORDER
     Dosage: UNK UKN, UNK
     Dates: start: 20030709
  5. CLOZARIL [Suspect]
     Dosage: 700 MG, DAILY
     Route: 048
     Dates: start: 20040101

REACTIONS (1)
  - DEATH [None]
